FAERS Safety Report 7774528-0 (Version None)
Quarter: 2011Q3

REPORT INFORMATION
  Report Type: 
  Country: None (occurrence: None)
  Receive Date: 20110923
  Receipt Date: 20110923
  Transmission Date: 20111222
  Serious: Yes (Death)
  Sender: FDA-Public Use
  Company Number: None

PATIENT
  Sex: Female
  Weight: 53.8 kg

DRUGS (2)
  1. HB1.F3.CD [Concomitant]
     Indication: GLIOBLASTOMA
     Dosage: 1 X 10_7 CELLS/ML
     Route: 036
     Dates: start: 20110816, end: 20110816
  2. FLUCYTOSINE [Suspect]
     Indication: GLIOBLASTOMA
     Dosage: 2250 MG
     Route: 048
     Dates: start: 20110820, end: 20110826

REACTIONS (2)
  - CONVULSION [None]
  - DYSPHAGIA [None]
